FAERS Safety Report 12539820 (Version 1)
Quarter: 2016Q3

REPORT INFORMATION
  Report Type: Spontaneous
  Country: DE (occurrence: DE)
  Receive Date: 20160708
  Receipt Date: 20160708
  Transmission Date: 20161109
  Serious: Yes (Other)
  Sender: FDA-Public Use
  Company Number: DE-SUN PHARMACEUTICAL INDUSTRIES LTD-2016R1-119750

PATIENT
  Age: 1 Day
  Sex: Male
  Weight: 2.95 kg

DRUGS (3)
  1. PARACETAMOL [Concomitant]
     Active Substance: ACETAMINOPHEN
     Indication: PRODUCT USED FOR UNKNOWN INDICATION
     Dosage: UNK
     Route: 064
  2. PAROXETINE. [Suspect]
     Active Substance: PAROXETINE
     Indication: DEPRESSION
     Dosage: 20 MG, EVERY SECOND DAY
     Route: 064
     Dates: start: 20141121, end: 20150814
  3. FOLSAURE [Concomitant]
     Active Substance: FOLIC ACID
     Indication: PROPHYLAXIS OF NEURAL TUBE DEFECT
     Route: 064

REACTIONS (3)
  - Neonatal respiratory failure [Recovered/Resolved]
  - Hypertonia neonatal [Recovered/Resolved]
  - Agitation neonatal [Recovered/Resolved]

NARRATIVE: CASE EVENT DATE: 20150814
